FAERS Safety Report 9258517 (Version 1)
Quarter: 2013Q1

REPORT INFORMATION
  Report Type: Spontaneous
  Country: US (occurrence: None)
  Receive Date: 20121212
  Receipt Date: 20121212
  Transmission Date: 20140127
  Serious: No
  Sender: FDA-Public Use
  Company Number: 1210USA011853

PATIENT
  Age: 67 Year
  Sex: Male

DRUGS (3)
  1. VICTRELIS (BOCEPREVIR) CAPSULE, 200MG [Suspect]
     Indication: HEPATITIS C
     Route: 048
  2. RIBAVIRIN (RIBAVIRIN) CAPSULE [Suspect]
  3. PEGASYS (PEGINTERFERON ALFA-2A) [Suspect]

REACTIONS (1)
  - Gastrointestinal disorder [None]
